FAERS Safety Report 9083771 (Version 7)
Quarter: 2013Q3

REPORT INFORMATION
  Report Type: Spontaneous
  Country: JP (occurrence: JP)
  Receive Date: 20130130
  Receipt Date: 20130704
  Transmission Date: 20140515
  Serious: Yes (Death, Hospitalization)
  Sender: FDA-Public Use
  Company Number: JP-PFIZER INC-2013037091

PATIENT
  Age: 77 Year
  Sex: Male
  Weight: 49.3 kg

DRUGS (7)
  1. INLYTA [Suspect]
     Indication: RENAL CELL CARCINOMA
     Dosage: 5 MG, 2X/DAY
     Route: 048
     Dates: start: 20121004, end: 20121212
  2. INLYTA [Suspect]
     Dosage: 3 MG, 2X/DAY
     Route: 048
     Dates: start: 20130124
  3. THYRADIN S [Concomitant]
     Indication: HYPOTHYROIDISM
     Dosage: 50 UG, 2X/DAY
     Route: 048
     Dates: start: 20120223
  4. DECADRON [Concomitant]
     Indication: DECREASED APPETITE
     Dosage: 1 MG, 1X/DAY
     Route: 048
     Dates: start: 20120817
  5. AMLODIN [Concomitant]
     Indication: HYPERTENSION
     Dosage: 10 MG, 1X/DAY
     Route: 048
     Dates: start: 201112
  6. LASIX [Concomitant]
     Indication: HYPERTENSION
     Dosage: 20 MG, 1X/DAY
     Route: 048
     Dates: start: 20121113
  7. LASIX [Concomitant]
     Indication: OEDEMA PERIPHERAL

REACTIONS (2)
  - Pneumonia [Fatal]
  - Protein urine present [Unknown]
